FAERS Safety Report 4587328-X (Version None)
Quarter: 2005Q1

REPORT INFORMATION
  Report Type: 
  Country: None (occurrence: None)
  Receive Date: 20050215
  Receipt Date: 20050211
  Transmission Date: 20050727
  Serious: No
  Sender: FDA-Public Use
  Company Number: 2005S1000160

PATIENT
  Age: 9 Year
  Sex: Female
  Weight: 19 kg

DRUGS (5)
  1. INOMAX [Suspect]
     Indication: VASODILATION PROCEDURE
     Dosage: 80 PPM; CONT; INH
     Dates: start: 20050208, end: 20050208
  2. ESMERON [Concomitant]
  3. FENTANEST [Concomitant]
  4. MIDAZOLAM [Concomitant]
  5. SEVORANE [Concomitant]

REACTIONS (2)
  - ELECTROCARDIOGRAM ST SEGMENT ELEVATION [None]
  - HYPOTENSION [None]
